FAERS Safety Report 16728889 (Version 1)
Quarter: 2019Q3

REPORT INFORMATION
  Report Type: Spontaneous
  Country: US (occurrence: US)
  Receive Date: 20190822
  Receipt Date: 20190822
  Transmission Date: 20191005
  Serious: No
  Sender: FDA-Public Use
  Company Number: US-MALLINCKRODT-T201802917

PATIENT
  Age: 58 Year
  Sex: Female

DRUGS (3)
  1. TYLENOL [Concomitant]
     Active Substance: ACETAMINOPHEN
     Indication: PAIN
     Dosage: EVERY 4 HOURS AS NEEDED
     Route: 065
  2. OXYCODONE [Suspect]
     Active Substance: OXYCODONE
     Indication: PAIN
     Dosage: 0.5 TO 1 TABLET EVERY 3 HOURS AS NEEDED
     Route: 048
     Dates: start: 201801
  3. OXYCODONE [Suspect]
     Active Substance: OXYCODONE
     Dosage: 0.5 TO 1 TABLET EVERY 3 HOURS AS NEEDED
     Route: 048

REACTIONS (3)
  - Wrong technique in product usage process [Unknown]
  - Abdominal pain upper [Unknown]
  - Gingival pain [Unknown]
